FAERS Safety Report 4575005-0 (Version None)
Quarter: 2005Q1

REPORT INFORMATION
  Report Type: 
  Country: None (occurrence: None)
  Receive Date: 20050208
  Receipt Date: 20050127
  Transmission Date: 20050727
  Serious: Yes (Death)
  Sender: FDA-Public Use
  Company Number: IT-ROCHE-393675

PATIENT
  Age: 55 Year
  Sex: Female

DRUGS (5)
  1. ROCEPHIN [Suspect]
     Indication: DRUG USE FOR UNKNOWN INDICATION
     Dosage: FORMULATION STATED AS VIAL.
     Route: 030
     Dates: start: 20050124
  2. NITROGLYCERIN [Suspect]
     Indication: CARDIAC DISORDER
     Route: 062
  3. ATENOLOL [Concomitant]
     Indication: CARDIAC DISORDER
     Route: 048
  4. NORVASC [Concomitant]
     Indication: CARDIAC DISORDER
     Route: 048
  5. CARDIOASPIRIN [Concomitant]
     Indication: CARDIAC DISORDER
     Route: 048

REACTIONS (1)
  - ANAPHYLACTIC SHOCK [None]
